FAERS Safety Report 24064990 (Version 1)
Quarter: 2024Q3

REPORT INFORMATION
  Report Type: Spontaneous
  Country: FR (occurrence: None)
  Receive Date: 20240709
  Receipt Date: 20240709
  Transmission Date: 20241017
  Serious: Yes (Death)
  Sender: ASTRAZENECA
  Company Number: 2024A156102

PATIENT
  Sex: Male
  Weight: 61 kg

DRUGS (1)
  1. DURVALUMAB [Suspect]
     Active Substance: DURVALUMAB
     Indication: Non-small cell lung cancer stage 0

REACTIONS (3)
  - Metastases to pancreas [Fatal]
  - Asthenia [Unknown]
  - Eastern Cooperative Oncology Group performance status worsened [Unknown]
